FAERS Safety Report 6852800-6 (Version None)
Quarter: 2010Q3

REPORT INFORMATION
  Report Type: 
  Country: None (occurrence: None)
  Receive Date: 20100717
  Receipt Date: 20080126
  Transmission Date: 20110219
  Serious: Yes (Other)
  Sender: FDA-Public Use
  Company Number: US-PFIZER INC-2007099318

PATIENT
  Sex: Female
  Weight: 65 kg

DRUGS (6)
  1. CHANTIX [Suspect]
     Indication: SMOKING CESSATION THERAPY
     Route: 048
     Dates: start: 20070822, end: 20071121
  2. IBUPROFEN [Concomitant]
     Indication: HEADACHE
  3. GUAIFENESIN [Concomitant]
     Dates: start: 20071119
  4. NASACORT AQ [Concomitant]
     Dosage: 2 SPRAYS IN EACH NOSTRIL DAILY
     Route: 045
     Dates: start: 20070822
  5. FLOVENT [Concomitant]
     Dates: start: 20070822
  6. PROZAC [Concomitant]
     Dates: start: 20070101

REACTIONS (9)
  - ACNE [None]
  - ANGER [None]
  - ANXIETY [None]
  - CRYING [None]
  - DEPRESSIVE SYMPTOM [None]
  - HORMONE LEVEL ABNORMAL [None]
  - MOOD SWINGS [None]
  - NASAL CONGESTION [None]
  - WEIGHT INCREASED [None]
